FAERS Safety Report 5576425-8 (Version None)
Quarter: 2007Q4

REPORT INFORMATION
  Report Type: 
  Country: None (occurrence: None)
  Receive Date: 20071228
  Receipt Date: 20071227
  Transmission Date: 20080405
  Serious: Yes (Other)
  Sender: FDA-Public Use
  Company Number: JP-BRISTOL-MYERS SQUIBB COMPANY-14024475

PATIENT
  Age: 39 Year
  Sex: Female

DRUGS (7)
  1. METHOTREXATE [Suspect]
     Indication: PROPHYLAXIS AGAINST GRAFT VERSUS HOST DISEASE
  2. VINCRISTINE SULFATE [Suspect]
     Indication: PROPHYLAXIS AGAINST GRAFT VERSUS HOST DISEASE
     Dosage: 0.4 MG/DAY CONTINUOUS, DAYS 1-4
     Route: 042
  3. DOXORUBICIN HCL [Suspect]
     Indication: PROPHYLAXIS AGAINST GRAFT VERSUS HOST DISEASE
     Dosage: 15 MG/DAY, CONTINUOUS DAYS 1-4
     Route: 042
  4. CYCLOSPORINE [Suspect]
     Indication: PROPHYLAXIS AGAINST GRAFT VERSUS HOST DISEASE
  5. DEXAMETHASONE TAB [Suspect]
     Indication: PROPHYLAXIS AGAINST GRAFT VERSUS HOST DISEASE
     Dosage: 40 MG/DAY, DAYS 1-4, 9-12 AND 17-20
  6. MELPHALAN [Suspect]
     Indication: PROPHYLAXIS AGAINST GRAFT VERSUS HOST DISEASE
     Dosage: ON DAY 4
     Route: 042
  7. RADIATION THERAPY [Suspect]
     Indication: PROPHYLAXIS AGAINST GRAFT VERSUS HOST DISEASE
     Dosage: 12 (GY)SIX FRACTIONS ON DAYS 3 TO 1

REACTIONS (4)
  - BRAIN COMPRESSION [None]
  - NO THERAPEUTIC RESPONSE [None]
  - PLASMACYTOMA [None]
  - VIITH NERVE PARALYSIS [None]
